FAERS Safety Report 8504471-0 (Version None)
Quarter: 2012Q3

REPORT INFORMATION
  Report Type: 
  Country: None (occurrence: None)
  Receive Date: 20120711
  Receipt Date: 20120706
  Transmission Date: 20120928
  Serious: Yes (Death, Other)
  Sender: FDA-Public Use
  Company Number: JP-PFIZER INC-2012117740

PATIENT
  Age: 72 Year
  Sex: Male

DRUGS (1)
  1. PIPERACILLIN/TAZOBACTAM [Suspect]
     Dosage: 13.5 G, UNK
     Route: 041
     Dates: start: 20110918, end: 20110918

REACTIONS (1)
  - LUNG NEOPLASM MALIGNANT [None]
